FAERS Safety Report 9148821 (Version 1)
Quarter: 2013Q1

REPORT INFORMATION
  Report Type: Spontaneous
  Country: GB (occurrence: None)
  Receive Date: 20130220
  Receipt Date: 20130220
  Transmission Date: 20140127
  Serious: Yes (Death, Other)
  Sender: FDA-Public Use
  Company Number: 2013P1002278

PATIENT
  Sex: 0

DRUGS (1)
  1. PROPANOLOL [Suspect]

REACTIONS (1)
  - Overdose [None]
